FAERS Safety Report 19233785 (Version 1)
Quarter: 2021Q2

REPORT INFORMATION
  Report Type: Spontaneous
  Country: GB (occurrence: GB)
  Receive Date: 20210507
  Receipt Date: 20210507
  Transmission Date: 20210717
  Serious: Yes (Disabling, Other)
  Sender: FDA-Public Use
  Company Number: GB-AUROBINDO-AUR-APL-2021-018447

PATIENT
  Age: 60 Year
  Sex: Male
  Weight: 69.85 kg

DRUGS (11)
  1. DONEPEZIL. [Concomitant]
     Active Substance: DONEPEZIL
     Indication: PRODUCT USED FOR UNKNOWN INDICATION
     Dosage: 5 MILLIGRAM
     Route: 065
     Dates: start: 20210121
  2. LOPERAMIDE [Concomitant]
     Active Substance: LOPERAMIDE
     Indication: PRODUCT USED FOR UNKNOWN INDICATION
     Dosage: 2 MILLIGRAM
     Route: 065
     Dates: start: 2015
  3. MIRTAZAPINE. [Suspect]
     Active Substance: MIRTAZAPINE
     Indication: ANXIETY
     Dosage: 15 MILLIGRAM
     Route: 048
  4. BUSCOPAN [Concomitant]
     Active Substance: BUTYLSCOPOLAMINE BROMIDE
     Indication: PRODUCT USED FOR UNKNOWN INDICATION
     Dosage: UNK
     Route: 065
     Dates: start: 2016
  5. LORVACS XL [Concomitant]
     Active Substance: INDAPAMIDE
     Indication: PRODUCT USED FOR UNKNOWN INDICATION
     Dosage: 5 MILLIGRAM
     Route: 065
     Dates: start: 20201215
  6. MIRTAZAPINE. [Suspect]
     Active Substance: MIRTAZAPINE
     Dosage: 45 MILLIGRAM
     Route: 048
     Dates: start: 20210114
  7. ANUSOL NOS [Concomitant]
     Active Substance: BALSAM PERU\BENZYL BENZOATE\BISMUTH HYDROXIDE\BISMUTH SUBGALLATE\HYDROCORTISONE ACETATE\ZINC OXIDE
     Indication: PRODUCT USED FOR UNKNOWN INDICATION
     Dosage: UNK
     Route: 065
     Dates: start: 2015
  8. CLOPIDOGREL [Concomitant]
     Active Substance: CLOPIDOGREL BISULFATE
     Indication: PRODUCT USED FOR UNKNOWN INDICATION
     Dosage: 75 MILLIGRAM
     Route: 065
     Dates: start: 20201215
  9. LIPITOR [Concomitant]
     Active Substance: ATORVASTATIN CALCIUM
     Indication: PRODUCT USED FOR UNKNOWN INDICATION
     Dosage: PREVIOUSLY 20MG AND TO INCREASE TO 80MG
     Route: 065
     Dates: start: 20201215
  10. MIRTAZAPINE. [Suspect]
     Active Substance: MIRTAZAPINE
     Dosage: 30 MILLIGRAM
     Route: 048
     Dates: start: 20201019, end: 20210113
  11. AMLODIPINE [Concomitant]
     Active Substance: AMLODIPINE BESYLATE
     Indication: PRODUCT USED FOR UNKNOWN INDICATION
     Dosage: 5 MILLIGRAM
     Route: 065
     Dates: start: 20210228

REACTIONS (14)
  - Blood pressure increased [Unknown]
  - Increased appetite [Not Recovered/Not Resolved]
  - Hypersomnia [Not Recovered/Not Resolved]
  - Somnolence [Recovered/Resolved]
  - Pruritus [Not Recovered/Not Resolved]
  - Pollakiuria [Not Recovered/Not Resolved]
  - Micturition urgency [Not Recovered/Not Resolved]
  - Angiopathy [Unknown]
  - Anxiety [Recovering/Resolving]
  - Nightmare [Recovering/Resolving]
  - Headache [Not Recovered/Not Resolved]
  - Agitation [Recovering/Resolving]
  - Amnesia [Not Recovered/Not Resolved]
  - Disturbance in attention [Unknown]

NARRATIVE: CASE EVENT DATE: 20201010
